FAERS Safety Report 9739721 (Version 2)
Quarter: 2014Q1

REPORT INFORMATION
  Report Type: Spontaneous
  Country: FR (occurrence: FR)
  Receive Date: 20131209
  Receipt Date: 20140206
  Transmission Date: 20141002
  Serious: Yes (Other)
  Sender: FDA-Public Use
  Company Number: FR-JNJFOC-20131201196

PATIENT
  Age: 30 Year
  Sex: Female
  Weight: 84 kg

DRUGS (6)
  1. REMICADE [Suspect]
     Indication: COLITIS ULCERATIVE
     Dosage: 0.0179 DF THIRD CYCLE
     Route: 042
     Dates: start: 20130903
  2. REMICADE [Suspect]
     Indication: COLITIS ULCERATIVE
     Dosage: 0.0179 DF
     Route: 042
     Dates: start: 20131014
  3. REMICADE [Suspect]
     Indication: COLITIS ULCERATIVE
     Route: 042
     Dates: start: 20131119
  4. REMICADE [Suspect]
     Indication: COLITIS ULCERATIVE
     Dosage: 0.0179 DF??FIRST CYCLE
     Route: 042
     Dates: start: 20130723
  5. REMICADE [Suspect]
     Indication: COLITIS ULCERATIVE
     Route: 042
     Dates: start: 201401
  6. PREDNISONE [Concomitant]
     Indication: PREMEDICATION
     Route: 065
     Dates: start: 20131014

REACTIONS (9)
  - Hypersensitivity [Recovered/Resolved]
  - Erythema [Recovered/Resolved]
  - Flushing [Recovered/Resolved]
  - Dyspnoea [Recovered/Resolved]
  - Suffocation feeling [Recovered/Resolved]
  - Vomiting [Recovered/Resolved]
  - Infusion related reaction [Recovered/Resolved]
  - Chest discomfort [Unknown]
  - Urticaria [Unknown]
